FAERS Safety Report 4825729-2 (Version None)
Quarter: 2005Q4

REPORT INFORMATION
  Report Type: 
  Country: None (occurrence: None)
  Receive Date: 20051111
  Receipt Date: 20051107
  Transmission Date: 20060501
  Serious: Yes (Other)
  Sender: FDA-Public Use
  Company Number: US-BOEHRINGER INGELHEIM PHARMACEUTICALS, INC.-2005-BP-19603YA

PATIENT
  Sex: Male

DRUGS (12)
  1. FLOMAX [Suspect]
     Indication: ILL-DEFINED DISORDER
  2. LIPITOR [Suspect]
     Indication: BLOOD CHOLESTEROL INCREASED
  3. ZYRTEC [Suspect]
     Indication: ILL-DEFINED DISORDER
  4. ALBUTEROL [Suspect]
     Indication: ILL-DEFINED DISORDER
  5. VITAMIN B-12 [Suspect]
     Indication: ILL-DEFINED DISORDER
  6. ISMO [Suspect]
     Indication: ILL-DEFINED DISORDER
  7. CARDIAC THERAPY [Concomitant]
  8. LORAZEPAM [Concomitant]
  9. METOPROLOL [Concomitant]
  10. ESOMEPRAZOLE [Concomitant]
  11. NICOTINIC ACID [Concomitant]
  12. CLOPIDOGREL BISULFATE [Concomitant]

REACTIONS (13)
  - BLINDNESS [None]
  - BLINDNESS UNILATERAL [None]
  - BLOOD CHOLESTEROL DECREASED [None]
  - BLOOD GLUCOSE INCREASED [None]
  - BLOOD UREA NITROGEN/CREATININE RATIO DECREASED [None]
  - CATARACT [None]
  - HIGH DENSITY LIPOPROTEIN DECREASED [None]
  - HYPOACUSIS [None]
  - ILL-DEFINED DISORDER [None]
  - IMPAIRED HEALING [None]
  - INTERNATIONAL NORMALISED RATIO DECREASED [None]
  - JAW FRACTURE [None]
  - NASAL OPERATION [None]
